FAERS Safety Report 14656211 (Version 1)
Quarter: 2018Q1

REPORT INFORMATION
  Report Type: Spontaneous
  Country: FR (occurrence: FR)
  Receive Date: 20180319
  Receipt Date: 20180319
  Transmission Date: 20180509
  Serious: Yes (Hospitalization)
  Sender: FDA-Public Use
  Company Number: FR-JNJFOC-20180322504

PATIENT
  Sex: Female

DRUGS (5)
  1. TRAMADOL HYDROCHLORIDE AND ACETAMINOPHEN [Suspect]
     Active Substance: ACETAMINOPHEN\TRAMADOL HYDROCHLORIDE
     Indication: BONE PAIN
     Route: 065
     Dates: start: 2014
  2. AVLOCARDYL [Concomitant]
     Active Substance: PROPRANOLOL HYDROCHLORIDE
     Indication: PRODUCT USED FOR UNKNOWN INDICATION
     Route: 065
  3. SEROPLEX [Concomitant]
     Active Substance: ESCITALOPRAM OXALATE
     Indication: ANXIETY
     Route: 065
  4. TRAMADOL HYDROCHLORIDE AND ACETAMINOPHEN [Suspect]
     Active Substance: ACETAMINOPHEN\TRAMADOL HYDROCHLORIDE
     Indication: BONE PAIN
     Route: 065
  5. COVERSYL [Concomitant]
     Active Substance: PERINDOPRIL
     Indication: HYPOCHOLESTEROLAEMIA
     Route: 065

REACTIONS (3)
  - Intentional product misuse [Not Recovered/Not Resolved]
  - Intestinal polyp [Recovered/Resolved]
  - Inappropriate schedule of drug administration [Unknown]
